FAERS Safety Report 20838495 (Version 3)
Quarter: 2022Q3

REPORT INFORMATION
  Report Type: Spontaneous
  Country: FR (occurrence: FR)
  Receive Date: 20220517
  Receipt Date: 20220718
  Transmission Date: 20221027
  Serious: Yes (Other)
  Sender: FDA-Public Use
  Company Number: FR-BAUSCH-BL-2022-011529

PATIENT
  Age: 77 Year
  Sex: Female

DRUGS (3)
  1. CARTEOLOL HYDROCHLORIDE [Suspect]
     Active Substance: CARTEOLOL HYDROCHLORIDE
     Indication: Intraocular pressure increased
     Dosage: TAKING FOR ALMOST 2 YEARS AT A DOSAGE REGIMEN OF 1 DROP IN EACH EYE IN THE MORNING
     Route: 047
  2. SUVEAL DUO [ASCORBIC ACID;FISH OIL;VITAMIN E NOS;ZINC SULFATE] [Concomitant]
     Indication: Age-related macular degeneration
     Dosage: 1 CAPS (CAPSULE) PER DAY
     Route: 065
  3. VITAMIN D3 [Concomitant]
     Active Substance: CHOLECALCIFEROL
     Indication: Product used for unknown indication
     Dosage: 2 DROPS IN THE MORNING
     Route: 065

REACTIONS (6)
  - Hypogammaglobulinaemia [Unknown]
  - Hyperhidrosis [Recovered/Resolved]
  - Musculoskeletal stiffness [Not Recovered/Not Resolved]
  - Paraesthesia [Recovered/Resolved]
  - Muscle spasms [Recovering/Resolving]
  - Peripheral coldness [Recovered/Resolved]

NARRATIVE: CASE EVENT DATE: 20220401
